FAERS Safety Report 5982627-9 (Version None)
Quarter: 2008Q4

REPORT INFORMATION
  Report Type: 
  Country: None (occurrence: None)
  Receive Date: 20081208
  Receipt Date: 20081203
  Transmission Date: 20090506
  Serious: Yes (Death)
  Sender: FDA-Public Use
  Company Number: PHHY2008MX30587

PATIENT
  Age: 35 Year
  Sex: Female

DRUGS (2)
  1. TRILEPTAL [Suspect]
     Indication: EPILEPSY
     Dosage: 300 MG, QD
     Dates: start: 20081111
  2. VALPROIC ACID [Concomitant]

REACTIONS (1)
  - NEOPLASM MALIGNANT [None]
